FAERS Safety Report 22240707 (Version 1)
Quarter: 2023Q2

REPORT INFORMATION
  Report Type: Spontaneous
  Country: US (occurrence: None)
  Receive Date: 20230421
  Receipt Date: 20230421
  Transmission Date: 20230721
  Serious: Yes (unspecified)
  Sender: FDA-Public Use
  Company Number: None

PATIENT
  Sex: Female
  Weight: 62.5 kg

DRUGS (5)
  1. NEXTERONE [Suspect]
     Active Substance: AMIODARONE HYDROCHLORIDE
     Dosage: CONTINUOUS INTRAVENOUS DRIP
     Route: 041
  2. DILTIAZEM [Concomitant]
     Active Substance: DILTIAZEM
  3. CEFTRIAXONE [Concomitant]
     Active Substance: CEFTRIAXONE
  4. CEFEPIME [Concomitant]
     Active Substance: CEFEPIME HYDROCHLORIDE
  5. ELIQUIS [Concomitant]
     Active Substance: APIXABAN

REACTIONS (4)
  - Dyspnoea [None]
  - Chest pain [None]
  - Palpitations [None]
  - Respiratory rate increased [None]

NARRATIVE: CASE EVENT DATE: 20230414
